FAERS Safety Report 8122429-0 (Version None)
Quarter: 2012Q1

REPORT INFORMATION
  Report Type: 
  Country: None (occurrence: None)
  Receive Date: 20120208
  Receipt Date: 20120131
  Transmission Date: 20120608
  Serious: Yes (Hospitalization)
  Sender: FDA-Public Use
  Company Number: NL-GLAXOSMITHKLINE-Z0000625A

PATIENT
  Sex: Male
  Weight: 104 kg

DRUGS (2)
  1. VOTRIENT [Suspect]
     Indication: NEOPLASM
     Dosage: 800MG PER DAY
     Route: 048
     Dates: start: 20081029
  2. TOPOTECAN [Suspect]
     Indication: NEOPLASM
     Dosage: 4MG SEE DOSAGE TEXT
     Route: 048
     Dates: start: 20081028, end: 20081111

REACTIONS (3)
  - ALANINE AMINOTRANSFERASE INCREASED [None]
  - HEPATITIS TOXIC [None]
  - ASPARTATE AMINOTRANSFERASE INCREASED [None]
